FAERS Safety Report 7507955-7 (Version None)
Quarter: 2011Q2

REPORT INFORMATION
  Report Type: 
  Country: None (occurrence: None)
  Receive Date: 20110519
  Receipt Date: 20110513
  Transmission Date: 20111010
  Serious: Yes (Hospitalization)
  Sender: FDA-Public Use
  Company Number: ACY-11-01

PATIENT
  Age: 25 Year
  Sex: Male

DRUGS (2)
  1. ACYCLOVIR [Suspect]
     Indication: HERPES ZOSTER
     Dosage: 800MG/5X DAY ORALLY
     Route: 048
  2. HYDROCODONE BITARTRATE + ACETAMINOPHEN [Concomitant]

REACTIONS (4)
  - RENAL FAILURE ACUTE [None]
  - HERPES OPHTHALMIC [None]
  - RASH VESICULAR [None]
  - CORNEAL OEDEMA [None]
